FAERS Safety Report 4582686-4 (Version None)
Quarter: 2005Q1

REPORT INFORMATION
  Report Type: 
  Country: None (occurrence: None)
  Receive Date: 20050215
  Receipt Date: 20041108
  Transmission Date: 20050727
  Serious: No
  Sender: FDA-Public Use
  Company Number: US-GLAXOSMITHKLINE-A0533026A

PATIENT
  Age: 51 Year
  Sex: Female
  Weight: 76.4 kg

DRUGS (1)
  1. NICODERM CQ [Suspect]
     Route: 062
     Dates: start: 20040101, end: 20040101

REACTIONS (5)
  - DRUG INEFFECTIVE [None]
  - FALL [None]
  - FOOT FRACTURE [None]
  - OEDEMA PERIPHERAL [None]
  - ROTATOR CUFF SYNDROME [None]
